FAERS Safety Report 13457666 (Version 1)
Quarter: 2017Q2

REPORT INFORMATION
  Report Type: Spontaneous
  Country: JP (occurrence: JP)
  Receive Date: 20170419
  Receipt Date: 20170419
  Transmission Date: 20170830
  Serious: Yes (Other)
  Sender: FDA-Public Use
  Company Number: JP-PFIZER INC-2017166799

PATIENT

DRUGS (1)
  1. CEFTRIAXONE SODIUM BAG 1G PFIZER [Suspect]
     Active Substance: CEFTRIAXONE SODIUM
     Dosage: UNK
     Route: 041

REACTIONS (4)
  - Erythema [Unknown]
  - Injection site extravasation [Unknown]
  - Internal haemorrhage [Unknown]
  - Vasculitis [Unknown]
